FAERS Safety Report 23598038 (Version 1)
Quarter: 2024Q1

REPORT INFORMATION
  Report Type: Spontaneous
  Country: JP (occurrence: JP)
  Receive Date: 20240305
  Receipt Date: 20240305
  Transmission Date: 20240410
  Serious: Yes (Hospitalization)
  Sender: FDA-Public Use
  Company Number: DEX 2024-0006

PATIENT
  Age: 46 Year
  Sex: Male

DRUGS (8)
  1. DEXMEDETOMIDINE HYDROCHLORIDE [Suspect]
     Active Substance: DEXMEDETOMIDINE HYDROCHLORIDE
     Indication: Sedation
     Dosage: 6 MICROGRAM/KILOGRAM, 1 HR, STARTED AT 13:20
     Route: 042
  2. DEXMEDETOMIDINE HYDROCHLORIDE [Suspect]
     Active Substance: DEXMEDETOMIDINE HYDROCHLORIDE
     Dosage: 0.7 MICROGRAM/KILOGRAM, 1 HR, AT 13:30
     Route: 042
  3. DEXMEDETOMIDINE HYDROCHLORIDE [Suspect]
     Active Substance: DEXMEDETOMIDINE HYDROCHLORIDE
     Dosage: 0.5 MICROGRAM/KILOGRAM, 1 HR, AT 13:40, STOPPED AT 14:55
     Route: 042
  4. HYDROXYZINE [Concomitant]
     Active Substance: HYDROXYZINE HYDROCHLORIDE
     Indication: Product used for unknown indication
     Dosage: 15 MILLIGRAM
     Route: 040
  5. CEFMETAZOLE [Concomitant]
     Active Substance: CEFMETAZOLE
     Indication: Product used for unknown indication
     Dosage: DILUTED WITH NORMAL SALINE (NS) 100 ML (1 GM)
     Route: 042
  6. PENTAZOCINE [Concomitant]
     Active Substance: PENTAZOCINE
     Indication: Product used for unknown indication
     Dosage: 12 MILLIGRAM, AT 13:28
     Route: 040
  7. LIDOCAINE [Suspect]
     Active Substance: LIDOCAINE
     Indication: Local anaesthesia
     Dosage: 3.6 MILLILITER, A RIGHT INFERIOR ALVEOLAR NERVE BLOCK, 1.8 ML (108 MG), AT 13:35
     Route: 065
  8. EPINEPHRINE [Concomitant]
     Active Substance: EPINEPHRINE
     Indication: Local anaesthesia
     Dosage: 67.5 MICROGRAM, AT 13:35
     Route: 065

REACTIONS (2)
  - Sinus bradycardia [Unknown]
  - Hypotension [Unknown]
